FAERS Safety Report 10242839 (Version 1)
Quarter: 2014Q2

REPORT INFORMATION
  Report Type: Spontaneous
  Country: US (occurrence: US)
  Receive Date: 20140618
  Receipt Date: 20140618
  Transmission Date: 20141212
  Serious: Yes (Death, Hospitalization, Other)
  Sender: FDA-Public Use
  Company Number: 2014SP000254

PATIENT
  Age: 82 Year
  Sex: Male

DRUGS (9)
  1. PACLITAXEL [Suspect]
     Indication: METASTATIC MALIGNANT MELANOMA
     Route: 042
     Dates: start: 20130703, end: 20131115
  2. CARBOPLATIN [Suspect]
     Indication: METASTATIC MALIGNANT MELANOMA
     Route: 042
     Dates: start: 20130703, end: 20131115
  3. DALTEPARIN SODIUM [Suspect]
     Indication: VENOUS THROMBOSIS
     Dates: start: 20131021
  4. GLUCOSAMINE [Concomitant]
     Dates: start: 20130128
  5. MULTIVITAMIN /07703801/ [Concomitant]
     Dates: start: 20130128
  6. IBUPROFEN /00109205/ [Concomitant]
     Dates: start: 20130415
  7. HYDROCORTISONE [Concomitant]
     Dates: start: 20130618
  8. LEVOTHYROXINE [Concomitant]
     Dates: start: 20130618
  9. PROCHLORPERAZINE [Concomitant]
     Dates: start: 20130703

REACTIONS (8)
  - Disease progression [Fatal]
  - Metastatic malignant melanoma [Fatal]
  - Cerebrovascular accident [Fatal]
  - Mental status changes [Fatal]
  - Unresponsive to stimuli [Fatal]
  - Cerebral haematoma [Unknown]
  - Vasogenic cerebral oedema [Unknown]
  - Venous thrombosis [Not Recovered/Not Resolved]
